FAERS Safety Report 7678327-X (Version None)
Quarter: 2011Q3

REPORT INFORMATION
  Report Type: 
  Country: None (occurrence: None)
  Receive Date: 20110811
  Receipt Date: 20110801
  Transmission Date: 20111222
  Serious: Yes (Hospitalization, Other)
  Sender: FDA-Public Use
  Company Number: US-JNJFOC-20101102889

PATIENT
  Sex: Male
  Weight: 54.7 kg

DRUGS (5)
  1. MESALAMINE [Concomitant]
     Route: 048
  2. BUDESONIDE [Concomitant]
  3. INFLIXIMAB, RECOMBINANT [Suspect]
     Route: 042
     Dates: start: 20100829
  4. INFLIXIMAB, RECOMBINANT [Suspect]
     Dosage: TOTAL 16 DOSES
     Route: 042
     Dates: start: 20100705
  5. INFLIXIMAB, RECOMBINANT [Suspect]
     Indication: CROHN'S DISEASE
     Route: 042
     Dates: start: 20080306

REACTIONS (2)
  - APPENDICITIS [None]
  - CROHN'S DISEASE [None]
